FAERS Safety Report 17416479 (Version 1)
Quarter: 2020Q1

REPORT INFORMATION
  Report Type: Spontaneous
  Country: US (occurrence: US)
  Receive Date: 20200213
  Receipt Date: 20200213
  Transmission Date: 20200409
  Serious: Yes (Other)
  Sender: FDA-Public Use
  Company Number: None

PATIENT
  Age: 76 Year
  Sex: Female
  Weight: 80.7 kg

DRUGS (2)
  1. OPDIVO [Suspect]
     Active Substance: NIVOLUMAB
     Indication: AESTHESIONEUROBLASTOMA
     Dosage: ?          OTHER FREQUENCY:EVERY 28 DAYS;?
     Route: 042
     Dates: start: 20191121
  2. OPDIVO [Suspect]
     Active Substance: NIVOLUMAB
     Indication: AESTHESIONEUROBLASTOMA
     Dosage: ?          OTHER FREQUENCY:EVERY 28 DAYS;?
     Route: 042
     Dates: start: 20191121

REACTIONS (2)
  - Back pain [None]
  - Infusion related reaction [None]

NARRATIVE: CASE EVENT DATE: 20200213
